FAERS Safety Report 5146000-8 (Version None)
Quarter: 2006Q4

REPORT INFORMATION
  Report Type: 
  Country: None (occurrence: None)
  Receive Date: 20061106
  Receipt Date: 20061106
  Transmission Date: 20070319
  Serious: Yes (Hospitalization)
  Sender: FDA-Public Use
  Company Number: None

PATIENT
  Age: 77 Year
  Sex: Female
  Weight: 38.4 kg

DRUGS (12)
  1. VELCADE [Suspect]
     Indication: LYMPHOMA
     Dosage: 1.6 MG/M2 IV
     Route: 042
     Dates: start: 20061030
  2. RITUXIMAB [Suspect]
     Indication: LYMPHOMA
     Dosage: 375 MG/M2 IV
     Route: 042
     Dates: start: 20061030
  3. MORPHINE [Concomitant]
  4. AMBIEN [Concomitant]
  5. PROTONIX [Concomitant]
  6. COLACE [Concomitant]
  7. ASPIRIN [Concomitant]
  8. LASIX [Concomitant]
  9. LOVENOX [Concomitant]
  10. LIPITOR [Concomitant]
  11. COREG [Concomitant]
  12. LISINOPRIL [Concomitant]

REACTIONS (5)
  - BUNDLE BRANCH BLOCK LEFT [None]
  - CHEST DISCOMFORT [None]
  - CHEST PAIN [None]
  - DILATATION ATRIAL [None]
  - PULMONARY OEDEMA [None]
